FAERS Safety Report 17724818 (Version 1)
Quarter: 2020Q2

REPORT INFORMATION
  Report Type: Spontaneous
  Country: ES (occurrence: ES)
  Receive Date: 20200429
  Receipt Date: 20200429
  Transmission Date: 20200714
  Serious: Yes (Hospitalization)
  Sender: FDA-Public Use
  Company Number: ES-ASTRAZENECA-2020SE56618

PATIENT
  Sex: Male
  Weight: 76 kg

DRUGS (5)
  1. DAPAGLIFLOZINA (8615A) [Suspect]
     Active Substance: DAPAGLIFLOZIN
     Indication: DIABETES MELLITUS
     Route: 048
     Dates: start: 20151007, end: 20200417
  2. LINAGLIPTINA (8509A) [Concomitant]
     Indication: DIABETES MELLITUS
     Route: 048
     Dates: start: 20190604
  3. METFORMINA (1359A) [Concomitant]
     Active Substance: METFORMIN HYDROCHLORIDE
     Indication: DIABETES MELLITUS
     Route: 048
     Dates: start: 20151007, end: 20200417
  4. ACETILSALICILICO ACIDO (176A) [Concomitant]
     Active Substance: ASPIRIN
     Route: 048
     Dates: start: 20150415
  5. ATORVASTATINA (7400A) [Concomitant]
     Active Substance: ATORVASTATIN
     Indication: DYSLIPIDAEMIA
     Route: 048
     Dates: start: 20190426

REACTIONS (2)
  - Vomiting [Recovered/Resolved]
  - Euglycaemic diabetic ketoacidosis [Recovered/Resolved]

NARRATIVE: CASE EVENT DATE: 20200401
